FAERS Safety Report 10022110 (Version 1)
Quarter: 2014Q1

REPORT INFORMATION
  Report Type: Spontaneous
  Country: US (occurrence: None)
  Receive Date: 20140318
  Receipt Date: 20140318
  Transmission Date: 20141002
  Serious: No
  Sender: FDA-Public Use
  Company Number: None

PATIENT
  Age: 77 Year
  Sex: Female
  Weight: 49.9 kg

DRUGS (3)
  1. CYCLOPHOSPHAMIDE [Suspect]
  2. FLUDARABINE [Suspect]
  3. RITUXAN [Concomitant]

REACTIONS (1)
  - Myelodysplastic syndrome [None]
